FAERS Safety Report 6345520-8 (Version None)
Quarter: 2009Q3

REPORT INFORMATION
  Report Type: 
  Country: None (occurrence: None)
  Receive Date: 20090909
  Receipt Date: 20090831
  Transmission Date: 20100115
  Serious: Yes (Hospitalization)
  Sender: FDA-Public Use
  Company Number: FR-AVENTIS-200913223FR

PATIENT
  Age: 59 Year
  Sex: Male

DRUGS (2)
  1. OFLOCET                            /00731801/ [Suspect]
     Indication: PSEUDOMEMBRANOUS COLITIS
     Dates: start: 20090316, end: 20090321
  2. FLAGYL [Suspect]
     Indication: PSEUDOMEMBRANOUS COLITIS
     Dates: start: 20090316, end: 20090323

REACTIONS (4)
  - AGITATION [None]
  - HALLUCINATION [None]
  - LOGORRHOEA [None]
  - MANIA [None]
